FAERS Safety Report 9442957 (Version 2)
Quarter: 2013Q3

REPORT INFORMATION
  Report Type: Spontaneous
  Country: SK (occurrence: SK)
  Receive Date: 20130806
  Receipt Date: 20130814
  Transmission Date: 20140515
  Serious: Yes (Other)
  Sender: FDA-Public Use
  Company Number: SK-BAYER-2013-092106

PATIENT
  Sex: Female

DRUGS (1)
  1. BETAFERON [Suspect]
     Route: 058

REACTIONS (3)
  - Sepsis [None]
  - Injection site necrosis [None]
  - Injection site abscess [None]
